FAERS Safety Report 8931072 (Version 1)
Quarter: 2012Q4

REPORT INFORMATION
  Report Type: 
  Country: US (occurrence: US)
  Receive Date: 20121128
  Receipt Date: 20121128
  Transmission Date: 20130627
  Serious: No
  Sender: FDA-Public Use
  Company Number: US-ASTRAZENECA-2012SE86718

PATIENT
  Sex: Male

DRUGS (3)
  1. NEXIUM [Suspect]
     Indication: DYSPEPSIA
     Route: 048
     Dates: start: 2010, end: 2010
  2. NEXIUM [Suspect]
     Indication: DYSPEPSIA
     Route: 048
     Dates: start: 2011
  3. OMEPRAZOLE [Suspect]
     Indication: DYSPEPSIA
     Route: 048
     Dates: start: 2010

REACTIONS (6)
  - Sleep disorder due to general medical condition, insomnia type [Unknown]
  - Gastrooesophageal reflux disease [Unknown]
  - Abdominal pain upper [Unknown]
  - Abdominal pain lower [Recovered/Resolved]
  - Drug ineffective [Unknown]
  - Off label use [Unknown]
